FAERS Safety Report 24248993 (Version 1)
Quarter: 2024Q3

REPORT INFORMATION
  Report Type: Spontaneous
  Country: US (occurrence: None)
  Receive Date: 20240822
  Receipt Date: 20240822
  Transmission Date: 20241017
  Serious: Yes (Disabling, Other)
  Sender: Public
  Company Number: None

PATIENT
  Age: 51 Day
  Sex: Female
  Weight: 61.23 kg

DRUGS (3)
  1. REPATHA [Suspect]
     Active Substance: EVOLOCUMAB
  2. ARMOUR THYROID [Concomitant]
     Active Substance: THYROID, PORCINE
  3. MULTI-VITAMIN [Concomitant]
     Active Substance: .ALPHA.-TOCOPHEROL ACETATE, DL-\ASCORBIC ACID\CYANOCOBALAMIN\FLUORIDE ION\FOLIC ACID\NIACIN\PYRIDOXI

REACTIONS (7)
  - Urinary tract infection [None]
  - Respiratory tract infection [None]
  - Muscle spasms [None]
  - Myalgia [None]
  - Back pain [None]
  - Impaired quality of life [None]
  - Blood glucose increased [None]

NARRATIVE: CASE EVENT DATE: 20240820
